FAERS Safety Report 6831856-0 (Version None)
Quarter: 2010Q3

REPORT INFORMATION
  Report Type: 
  Country: None (occurrence: None)
  Receive Date: 20100706
  Receipt Date: 20100621
  Transmission Date: 20110219
  Serious: Yes (Hospitalization)
  Sender: FDA-Public Use
  Company Number: 2010AP001283

PATIENT
  Age: 75 Year
  Sex: Female

DRUGS (7)
  1. RAMIPRIL [Suspect]
     Indication: MYOCARDIAL INFARCTION
     Dosage: 2.5 MG;PO
     Route: 048
     Dates: start: 20090818, end: 20090819
  2. ASPIRIN [Concomitant]
  3. BENDROFLUMETHIAZIDE (BENDROFLUMETHIAZIDE) [Concomitant]
  4. CLOPIDOGREL [Concomitant]
  5. PRACETAMOL (PARACETAMOL) [Concomitant]
  6. SIMVASTATIN [Concomitant]
  7. TIOTROPIUM BROMIDE (TIOTROPIUM BROMIDE) [Concomitant]

REACTIONS (2)
  - CONFUSIONAL STATE [None]
  - DELIRIUM [None]
